FAERS Safety Report 4609647-0 (Version None)
Quarter: 2005Q1

REPORT INFORMATION
  Report Type: 
  Country: None (occurrence: None)
  Receive Date: 20050314
  Receipt Date: 20050314
  Transmission Date: 20050727
  Serious: Yes (Hospitalization)
  Sender: FDA-Public Use
  Company Number: None

PATIENT
  Age: 35 Year
  Sex: Female
  Weight: 62.4 kg

DRUGS (1)
  1. ESKALITH [Suspect]
     Dosage: 450MG/900MG AM/PM ORAL
     Route: 048

REACTIONS (7)
  - ABASIA [None]
  - ABNORMAL BEHAVIOUR [None]
  - BLOOD POTASSIUM INCREASED [None]
  - HAEMODIALYSIS [None]
  - LETHARGY [None]
  - RENAL FAILURE ACUTE [None]
  - THERAPEUTIC AGENT TOXICITY [None]
